FAERS Safety Report 11271189 (Version 1)
Quarter: 2015Q3

REPORT INFORMATION
  Report Type: Spontaneous
  Country: US (occurrence: US)
  Receive Date: 20150714
  Receipt Date: 20150714
  Transmission Date: 20151125
  Serious: Yes (Other)
  Sender: FDA-Public Use
  Company Number: US-GLAXOSMITHKLINE-US2015099201

PATIENT
  Age: 57 Year
  Sex: Male

DRUGS (3)
  1. JALYN [Suspect]
     Active Substance: DUTASTERIDE\TAMSULOSIN HYDROCHLORIDE
     Indication: PROSTATOMEGALY
     Dosage: UNK UNK, QD
     Route: 048
     Dates: start: 201411
  2. JALYN [Suspect]
     Active Substance: DUTASTERIDE\TAMSULOSIN HYDROCHLORIDE
     Indication: POLLAKIURIA
  3. MYRBETRIQ [Concomitant]
     Active Substance: MIRABEGRON

REACTIONS (5)
  - Blood pressure increased [Recovered/Resolved]
  - Visual impairment [Not Recovered/Not Resolved]
  - Vision blurred [Not Recovered/Not Resolved]
  - Dizziness [Not Recovered/Not Resolved]
  - Intraocular pressure increased [Recovered/Resolved]

NARRATIVE: CASE EVENT DATE: 201411
